FAERS Safety Report 5592847-3 (Version None)
Quarter: 2008Q1

REPORT INFORMATION
  Report Type: 
  Country: None (occurrence: None)
  Receive Date: 20080116
  Receipt Date: 20080103
  Transmission Date: 20080703
  Serious: Yes (Hospitalization, Other)
  Sender: FDA-Public Use
  Company Number: PHNU2008DE00535

PATIENT
  Sex: Female

DRUGS (3)
  1. CYCLOSPORINE [Suspect]
     Indication: RENAL TRANSPLANT
     Dates: start: 19930801
  2. AZATHIOPRINE [Suspect]
     Indication: RENAL TRANSPLANT
     Dates: start: 19930801
  3. STEROIDS NOS [Suspect]
     Indication: RENAL TRANSPLANT
     Dates: start: 19930801

REACTIONS (10)
  - ALBUMINURIA [None]
  - BLOOD CREATININE INCREASED [None]
  - CERVIX DISORDER [None]
  - CHRONIC ALLOGRAFT NEPHROPATHY [None]
  - DIVERTICULITIS [None]
  - DIVERTICULUM [None]
  - OSTEOPOROSIS [None]
  - PROSTHESIS IMPLANTATION [None]
  - RENAL IMPAIRMENT [None]
  - SIGMOIDECTOMY [None]
